FAERS Safety Report 11657631 (Version 1)
Quarter: 2015Q4

REPORT INFORMATION
  Report Type: Report from Study
  Country: US (occurrence: US)
  Receive Date: 20151023
  Receipt Date: 20151023
  Transmission Date: 20160304
  Serious: No
  Sender: FDA-Public Use
  Company Number: US-CELGENEUS-USA-2015091924

PATIENT
  Sex: Female

DRUGS (1)
  1. REVLIMID [Suspect]
     Active Substance: LENALIDOMIDE
     Indication: PRODUCT USED FOR UNKNOWN INDICATION
     Route: 048

REACTIONS (9)
  - Liver function test abnormal [Unknown]
  - Adverse drug reaction [Unknown]
  - Anaemia [Unknown]
  - Haematocrit decreased [Unknown]
  - Salmonellosis [Unknown]
  - Renal function test abnormal [Unknown]
  - Gastrointestinal disorder [Unknown]
  - Red blood cell count decreased [Unknown]
  - Dehydration [Unknown]
